FAERS Safety Report 26069971 (Version 1)
Quarter: 2025Q4

REPORT INFORMATION
  Report Type: Spontaneous
  Country: US (occurrence: US)
  Receive Date: 20251120
  Receipt Date: 20251120
  Transmission Date: 20260118
  Serious: No
  Sender: CATALYST PHARMA
  Company Number: US-CATALYST PHARMACEUTICALS-US-CATA-25-01543

PATIENT
  Age: 17 Year
  Sex: Male
  Weight: 71.655 kg

DRUGS (4)
  1. AGAMREE [Suspect]
     Active Substance: VAMOROLONE
     Indication: Duchenne muscular dystrophy
     Dosage: 6 ML ONCE A DAY
     Route: 048
     Dates: start: 20240622
  2. CALCIUM [Concomitant]
     Active Substance: CALCIUM
     Indication: Hypovitaminosis
     Dosage: 500 MG DAILY
     Route: 065
  3. VITAMIN D3 [Concomitant]
     Active Substance: CHOLECALCIFEROL
     Indication: Hypovitaminosis
     Dosage: 1000 UNITS DAILY
     Route: 065
  4. ADVIL [Concomitant]
     Active Substance: IBUPROFEN
     Indication: Pain
     Dosage: 200 MG EVERY 6 HOURS
     Route: 065

REACTIONS (1)
  - Dental operation [Recovering/Resolving]

NARRATIVE: CASE EVENT DATE: 20251001
